FAERS Safety Report 25594331 (Version 1)
Quarter: 2025Q3

REPORT INFORMATION
  Report Type: Report from Study
  Country: CA (occurrence: CA)
  Receive Date: 20250723
  Receipt Date: 20250723
  Transmission Date: 20251021
  Serious: Yes (Other)
  Sender: Alvotech
  Company Number: CA-JAMP PHARMA CORPORATION-2025-JAM-CA-01176

PATIENT
  Age: 42 Year
  Sex: Male

DRUGS (1)
  1. SIMLANDI [Suspect]
     Active Substance: ADALIMUMAB-RYVK
     Indication: Ankylosing spondylitis
     Dosage: 40 MILLIGRAM, EVERY 2 WEEKS
     Route: 065

REACTIONS (5)
  - Ankylosing spondylitis [Unknown]
  - Ocular hyperaemia [Unknown]
  - Photosensitivity reaction [Unknown]
  - Fatigue [Unknown]
  - Pain [Unknown]

NARRATIVE: CASE EVENT DATE: 20250704
